FAERS Safety Report 9526034 (Version 1)
Quarter: 2013Q1

REPORT INFORMATION
  Report Type: Spontaneous
  Country: US (occurrence: None)
  Receive Date: 20130314
  Receipt Date: 20130314
  Transmission Date: 20140127
  Serious: No
  Sender: FDA-Public Use
  Company Number: 1302USA001357

PATIENT
  Age: 59 Year
  Sex: Female

DRUGS (2)
  1. VICTRELIS [Suspect]
     Indication: HEPATITIS C
     Dosage: 4 CAPSULES EVERY 8 HOURS WITH FOOD, ORAL
     Route: 048
     Dates: start: 20120824
  2. PEGASYS (PEGINTERFERON ALFA-2A) [Suspect]

REACTIONS (4)
  - Skin mass [None]
  - Erythema [None]
  - Anaemia [None]
  - Dysgeusia [None]
